FAERS Safety Report 8870828 (Version 1)
Quarter: 2012Q4

REPORT INFORMATION
  Report Type: 
  Country: US (occurrence: US)
  Receive Date: 20121026
  Receipt Date: 20121026
  Transmission Date: 20130627
  Serious: No
  Sender: FDA-Public Use
  Company Number: US-AMGEN-USASP2012046851

PATIENT
  Age: 64 Year
  Sex: Male
  Weight: 88.44 kg

DRUGS (10)
  1. ENBREL [Suspect]
     Indication: PRODUCT USED FOR UNKNOWN INDICATION
     Dosage: 50 mg, qwk
     Route: 058
  2. ARTHROTEC [Concomitant]
     Dosage: 75 mg, UNK
  3. METHOTREXATE [Concomitant]
     Dosage: 2.5 mg, UNK
  4. PATANOL [Concomitant]
     Dosage: 0.1 %, UNK
  5. NASONEX [Concomitant]
     Dosage: 50 mug
  6. LORAZEPAM [Concomitant]
     Dosage: 1 mg, UNK
  7. OMEPRAZOLE [Concomitant]
     Dosage: 10 mg, UNK
  8. FLOMAX                             /00889901/ [Concomitant]
     Dosage: 0.4 mg, UNK
  9. CLARITIN                           /00413701/ [Concomitant]
     Dosage: 10 mg, UNK
  10. FOLIC ACID [Concomitant]
     Dosage: UNK

REACTIONS (2)
  - Injection site cellulitis [Recovered/Resolved]
  - Injection site reaction [Recovered/Resolved]
